FAERS Safety Report 11875239 (Version 1)
Quarter: 2015Q4

REPORT INFORMATION
  Report Type: Spontaneous
  Country: US (occurrence: US)
  Receive Date: 20151229
  Receipt Date: 20151229
  Transmission Date: 20160305
  Serious: No
  Sender: FDA-Public Use
  Company Number: US-DEXPHARM-20151088

PATIENT
  Age: 21 Year
  Sex: Female
  Weight: 70.75 kg

DRUGS (1)
  1. OMEPRAZOLE DELAYED RELEASE [Suspect]
     Active Substance: OMEPRAZOLE
     Indication: WRONG DRUG ADMINISTERED
     Dosage: 60 MG, SINGLE
     Route: 048
     Dates: start: 20150225, end: 20150225

REACTIONS (1)
  - Wrong drug administered [Recovered/Resolved]

NARRATIVE: CASE EVENT DATE: 20150225
